FAERS Safety Report 19200376 (Version 4)
Quarter: 2021Q4

REPORT INFORMATION
  Report Type: Other
  Country: JP (occurrence: JP)
  Receive Date: 20210430
  Receipt Date: 20211022
  Transmission Date: 20220304
  Serious: Yes (Life-Threatening, Hospitalization)
  Sender: FDA-Public Use
  Company Number: JP-CHUGAI-A2021017350ROCHE

PATIENT
  Age: 69 Year
  Sex: Female
  Weight: 60 kg

DRUGS (6)
  1. SATRALIZUMAB [Suspect]
     Active Substance: SATRALIZUMAB
     Indication: Neuromyelitis optica spectrum disorder
     Route: 058
     Dates: start: 20201102, end: 20201203
  2. SATRALIZUMAB [Suspect]
     Active Substance: SATRALIZUMAB
     Route: 058
     Dates: start: 20210107, end: 20210107
  3. SATRALIZUMAB [Suspect]
     Active Substance: SATRALIZUMAB
     Route: 058
     Dates: start: 20210204, end: 20210204
  4. SATRALIZUMAB [Suspect]
     Active Substance: SATRALIZUMAB
     Route: 058
     Dates: start: 20210310
  5. PREDNISOLONE [Concomitant]
     Active Substance: PREDNISOLONE
     Dosage: 12 MG/DAY
     Route: 048
     Dates: start: 20201102
  6. PREDNISOLONE [Concomitant]
     Active Substance: PREDNISOLONE
     Dosage: 7.5 MG/DAY
     Route: 048

REACTIONS (1)
  - Pneumonia aspiration [Recovered/Resolved]

NARRATIVE: CASE EVENT DATE: 20210314
